FAERS Safety Report 12907270 (Version 3)
Quarter: 2017Q3

REPORT INFORMATION
  Report Type: Report from Study
  Country: DE (occurrence: DE)
  Receive Date: 20161103
  Receipt Date: 20170920
  Transmission Date: 20171127
  Serious: Yes (Other)
  Sender: FDA-Public Use
  Company Number: DE-SA-2016SA198293

PATIENT
  Age: 29 Year
  Sex: Female

DRUGS (1)
  1. LEMTRADA [Suspect]
     Active Substance: ALEMTUZUMAB
     Indication: MULTIPLE SCLEROSIS
     Route: 041
     Dates: start: 20160920, end: 20160922

REACTIONS (10)
  - Fatigue [Not Recovered/Not Resolved]
  - Alopecia [Not Recovered/Not Resolved]
  - Abscess [Unknown]
  - Maternal exposure before pregnancy [Unknown]
  - Subcutaneous abscess [Unknown]
  - Mucosal inflammation [Unknown]
  - White blood cells urine positive [Unknown]
  - Dysuria [Recovered/Resolved]
  - Protein urine present [Recovered/Resolved]
  - Groin abscess [Not Recovered/Not Resolved]

NARRATIVE: CASE EVENT DATE: 2016
